FAERS Safety Report 19415319 (Version 12)
Quarter: 2021Q4

REPORT INFORMATION
  Report Type: Report from Study
  Country: KR (occurrence: None)
  Receive Date: 20210614
  Receipt Date: 20211221
  Transmission Date: 20220303
  Serious: Yes (Life-Threatening, Hospitalization)
  Sender: FDA-Public Use
  Company Number: KR-ROCHE-2846898

PATIENT
  Age: 41 Year
  Sex: Female
  Weight: 54.35 kg

DRUGS (46)
  1. ATEZOLIZUMAB [Suspect]
     Active Substance: ATEZOLIZUMAB
     Indication: HER2 positive breast cancer
     Dosage: THE START DATE OF MOST RECENT DOSE OF BLINDED ATEZOLIZUMAB PRIOR TO AE AND SAE ONSET: 27/MAY/2021
     Route: 041
     Dates: start: 20210527
  2. ADO-TRASTUZUMAB EMTANSINE [Suspect]
     Active Substance: ADO-TRASTUZUMAB EMTANSINE
     Indication: HER2 positive breast cancer
     Dosage: START DATE OF MOST RECENT DOSE OF STUDY DRUG PRIOR TO AE 27/MAY/2021?DOSE LAST STUDY DRUG ADMIN PRIO
     Route: 042
     Dates: start: 20210527
  3. URSODIOL [Concomitant]
     Active Substance: URSODIOL
     Indication: Hepatitis
     Dates: start: 20210610, end: 20210707
  4. LASIX [Concomitant]
     Active Substance: FUROSEMIDE
     Indication: Pulmonary oedema
     Dates: start: 20210609, end: 20210611
  5. GRASIN [Concomitant]
     Indication: Febrile neutropenia
     Dates: start: 20210609, end: 20210610
  6. AUGMENTIN [Concomitant]
     Active Substance: AMOXICILLIN\CLAVULANATE POTASSIUM
     Indication: Tonsillitis
     Dates: start: 20210607, end: 20210620
  7. AUGMENTIN [Concomitant]
     Active Substance: AMOXICILLIN\CLAVULANATE POTASSIUM
     Indication: Peritonsillar abscess
  8. ACETPHEN PREMIX [Concomitant]
     Indication: Pyrexia
     Dates: start: 20210605, end: 20210606
  9. BACTACIN (SOUTH KOREA) [Concomitant]
     Indication: Pyrexia
     Dates: start: 20210607, end: 20210607
  10. GASTER (SOUTH KOREA) [Concomitant]
     Indication: Abdominal discomfort
     Dates: start: 20210607, end: 20210621
  11. GASTER (SOUTH KOREA) [Concomitant]
     Dates: start: 20210610, end: 20210616
  12. GASTER (SOUTH KOREA) [Concomitant]
     Dates: start: 20210707, end: 20210804
  13. ACECLOFENAC [Concomitant]
     Active Substance: ACECLOFENAC
     Indication: Pyrexia
     Dates: start: 20210607, end: 20210621
  14. TANTUM [Concomitant]
     Active Substance: BENZYDAMINE HYDROCHLORIDE
     Indication: Tonsillitis
     Dates: start: 20210607, end: 20210620
  15. CODAEWON FORTE [Concomitant]
     Indication: Tonsillitis
     Dosage: SYRUP
     Dates: start: 20210609, end: 20210610
  16. THEOBROMINE [Concomitant]
     Active Substance: THEOBROMINE
     Indication: Tonsillitis
     Dates: start: 20210609, end: 20210610
  17. TRAMOL (SOUTH KOREA) [Concomitant]
     Indication: Tonsillitis
     Dates: start: 20210609, end: 20210610
  18. PARACAINE [Concomitant]
     Active Substance: PROPARACAINE HYDROCHLORIDE
     Dosage: OPH SOLUTION
     Route: 047
     Dates: start: 20210609, end: 20210609
  19. TROPHERIN [Concomitant]
     Indication: Optic neuritis
     Dosage: OPH SOLUTION
     Route: 047
     Dates: start: 20210609, end: 20210609
  20. TROPHERIN [Concomitant]
     Dates: start: 20210623, end: 20210623
  21. TROPHERIN [Concomitant]
     Dates: start: 20210630, end: 20210630
  22. TROPHERIN [Concomitant]
     Dates: start: 20210726, end: 20210726
  23. DIETARY SUPPLEMENT\HERBALS\MILK THISTLE [Concomitant]
     Active Substance: DIETARY SUPPLEMENT\HERBALS\MILK THISTLE
     Indication: Hepatitis
     Dates: start: 20210610, end: 20210610
  24. NAK200 [Concomitant]
     Dates: start: 20210610, end: 20210610
  25. HEPARIN [Concomitant]
     Active Substance: HEPARIN SODIUM
     Dates: start: 20210610, end: 20210610
  26. HEPARIN [Concomitant]
     Active Substance: HEPARIN SODIUM
     Dates: start: 20210618, end: 20210619
  27. VASELINE PURE [Concomitant]
     Active Substance: PETROLATUM
     Dates: start: 20210610, end: 20210610
  28. HEXAMEDIN [Concomitant]
     Dates: start: 20210610, end: 20210612
  29. HEXAMEDIN [Concomitant]
     Dates: start: 20210620, end: 20210628
  30. METOCLOPRAMIDE HYDROCHLORIDE [Concomitant]
     Active Substance: METOCLOPRAMIDE HYDROCHLORIDE
     Indication: Nausea
     Dates: start: 20210612, end: 20210612
  31. ENOXAPARIN SODIUM [Concomitant]
     Active Substance: ENOXAPARIN SODIUM
     Indication: Thrombosis prophylaxis
     Dates: start: 20210612, end: 20210616
  32. COMBIFLEX (SOUTH KOREA) [Concomitant]
     Dates: start: 20210613, end: 20210617
  33. COMBIFLEX (SOUTH KOREA) [Concomitant]
     Dates: start: 20210613, end: 20210619
  34. PHOSTEN [Concomitant]
     Dates: start: 20210613, end: 20210616
  35. PHOSTEN [Concomitant]
     Dates: start: 20210620, end: 20210620
  36. NEXIUM [Concomitant]
     Active Substance: ESOMEPRAZOLE MAGNESIUM
     Indication: Abdominal discomfort
     Dates: start: 20210617, end: 20210620
  37. NEXIUM [Concomitant]
     Active Substance: ESOMEPRAZOLE MAGNESIUM
     Dates: start: 20210621, end: 20210707
  38. ALMAX (SOUTH KOREA) [Concomitant]
     Indication: Abdominal discomfort
     Dates: start: 20210622, end: 20210622
  39. ZANAPAM [Concomitant]
     Indication: Anxiety
     Dates: start: 20210626, end: 20210707
  40. ZALTOPROFEN [Concomitant]
     Active Substance: ZALTOPROFEN
     Indication: Arthritis
     Dates: start: 20210707, end: 20210804
  41. TAMOXIFEN CITRATE [Concomitant]
     Active Substance: TAMOXIFEN CITRATE
     Indication: Breast cancer
     Route: 048
     Dates: start: 20210722
  42. LEUPLIN [Concomitant]
     Active Substance: LEUPROLIDE ACETATE
     Indication: Breast cancer
     Route: 058
     Dates: start: 20210722, end: 20210722
  43. NEURONTIN [Concomitant]
     Active Substance: GABAPENTIN
     Indication: Neuropathy peripheral
     Dates: start: 20210707, end: 20210804
  44. NORVASC [Concomitant]
     Active Substance: AMLODIPINE BESYLATE
     Indication: Hypertension
     Dates: start: 20210708, end: 20210722
  45. HERCEPTIN [Concomitant]
     Active Substance: TRASTUZUMAB
     Indication: Breast cancer
     Route: 065
     Dates: start: 20210804
  46. PINE INJ. [Concomitant]
     Indication: Thrombosis prophylaxis
     Dates: start: 20210612, end: 20210616

REACTIONS (3)
  - Sepsis [Recovered/Resolved]
  - Pneumonitis [Recovered/Resolved]
  - Optic neuritis [Not Recovered/Not Resolved]

NARRATIVE: CASE EVENT DATE: 20210606
